FAERS Safety Report 16734618 (Version 3)
Quarter: 2020Q4

REPORT INFORMATION
  Report Type: Spontaneous
  Country: JP (occurrence: JP)
  Receive Date: 20190823
  Receipt Date: 20201111
  Transmission Date: 20210113
  Serious: Yes (Death, Life-Threatening)
  Sender: FDA-Public Use
  Company Number: JP-EISAI MEDICAL RESEARCH-EC-2019-057576

PATIENT
  Age: 53 Year
  Sex: Male
  Weight: 45 kg

DRUGS (2)
  1. LENVIMA [Suspect]
     Active Substance: LENVATINIB
     Indication: HEPATOCELLULAR CARCINOMA
     Dosage: 8MG X 5 DAYS/WEEK
     Route: 048
     Dates: start: 20190328, end: 20190410
  2. LENVIMA [Suspect]
     Active Substance: LENVATINIB
     Dosage: 4MG X 5 DAYS/WEEK
     Route: 048
     Dates: start: 20190411, end: 20190417

REACTIONS (1)
  - Gastric ulcer haemorrhage [Recovering/Resolving]

NARRATIVE: CASE EVENT DATE: 20190417
